FAERS Safety Report 25629232 (Version 2)
Quarter: 2025Q4

REPORT INFORMATION
  Report Type: Spontaneous
  Country: US (occurrence: US)
  Receive Date: 20250731
  Receipt Date: 20251014
  Transmission Date: 20260117
  Serious: No
  Sender: SANOFI AVENTIS
  Company Number: US-SA-2025SA222094

PATIENT
  Age: 59 Year
  Sex: Male

DRUGS (2)
  1. DUPIXENT [Suspect]
     Active Substance: DUPILUMAB
     Indication: Chronic obstructive pulmonary disease
     Dosage: 600 MG, 1X
     Route: 058
     Dates: start: 20250408, end: 20250408
  2. DUPIXENT [Suspect]
     Active Substance: DUPILUMAB
     Dosage: 300 MG, QOW
     Route: 058
     Dates: start: 202504, end: 202508

REACTIONS (13)
  - Brain fog [Not Recovered/Not Resolved]
  - Chest discomfort [Not Recovered/Not Resolved]
  - Weight increased [Not Recovered/Not Resolved]
  - Depression [Not Recovered/Not Resolved]
  - Pain in extremity [Not Recovered/Not Resolved]
  - Discomfort [Not Recovered/Not Resolved]
  - Injection site discomfort [Recovered/Resolved]
  - Headache [Not Recovered/Not Resolved]
  - Swelling of eyelid [Not Recovered/Not Resolved]
  - Dry eye [Not Recovered/Not Resolved]
  - Arthralgia [Recovered/Resolved]
  - Injection site pain [Unknown]
  - Drug ineffective [Unknown]

NARRATIVE: CASE EVENT DATE: 20250101
